FAERS Safety Report 7041943-2 (Version None)
Quarter: 2010Q4

REPORT INFORMATION
  Report Type: 
  Country: None (occurrence: None)
  Receive Date: 20101013
  Receipt Date: 20100122
  Transmission Date: 20110411
  Serious: No
  Sender: FDA-Public Use
  Company Number: US-ASTRAZENECA-2010SE03182

PATIENT
  Age: 22906 Day
  Sex: Male
  Weight: 95.3 kg

DRUGS (4)
  1. SYMBICORT [Suspect]
     Indication: ASTHMA
     Dosage: 80 UG 2 PUFFS
     Route: 055
     Dates: start: 20090901, end: 20100101
  2. SYMBICORT [Suspect]
     Dosage: 160 UG 2 PUFFS ONCE OR TWICE A DAY
     Route: 055
     Dates: start: 20100121
  3. ATROVENT [Concomitant]
     Indication: ASTHMA
     Route: 055
  4. XOPENEX [Concomitant]
     Indication: ASTHMA
     Route: 055

REACTIONS (2)
  - DRUG DOSE OMISSION [None]
  - DYSPNOEA [None]
